FAERS Safety Report 9413548 (Version 1)
Quarter: 2013Q1

REPORT INFORMATION
  Report Type: Spontaneous
  Country: IE (occurrence: None)
  Receive Date: 20121203
  Receipt Date: 20121203
  Transmission Date: 20140127
  Serious: Yes (Other)
  Sender: FDA-Public Use
  Company Number: 219268

PATIENT
  Age: 27 Year
  Sex: Male

DRUGS (3)
  1. NON-LEO PRODUCT (0.05 %, OINTMENT [Suspect]
     Indication: PSORIASIS
     Route: 061
  2. MOMETASONE (MOMETASONE FUROATE) (0.01 %, CREAM) [Concomitant]
  3. BETAMETHASONE VALERATE (BETAMETHASONE VALERATE) (0.1%, CREAM) [Concomitant]

REACTIONS (1)
  - Osteonecrosis [None]
